FAERS Safety Report 16461918 (Version 1)
Quarter: 2019Q2

REPORT INFORMATION
  Report Type: Report from Study
  Country: CA (occurrence: CA)
  Receive Date: 20190621
  Receipt Date: 20190621
  Transmission Date: 20190711
  Serious: No
  Sender: FDA-Public Use
  Company Number: CA-BEH-2019103223

PATIENT
  Sex: Male

DRUGS (8)
  1. HYDROMORPH [Concomitant]
     Active Substance: HYDROMORPHONE
  2. HIZENTRA [Suspect]
     Active Substance: HUMAN IMMUNOGLOBULIN G
     Indication: SECONDARY IMMUNODEFICIENCY
     Dosage: 8 GRAM, QW
     Route: 058
     Dates: start: 20181204
  3. KETAMINE [Concomitant]
     Active Substance: KETAMINE
     Dosage: UNK, QMT
  4. HIZENTRA [Suspect]
     Active Substance: HUMAN IMMUNOGLOBULIN G
     Indication: NON-HODGKIN^S LYMPHOMA
  5. LYRICA [Concomitant]
     Active Substance: PREGABALIN
  6. VALPROEX [Concomitant]
  7. HIZENTRA [Suspect]
     Active Substance: HUMAN IMMUNOGLOBULIN G
     Indication: BONE MARROW TRANSPLANT
     Dosage: 8 GRAM, TOT
     Route: 058
     Dates: start: 2019, end: 2019
  8. ATIVAN [Concomitant]
     Active Substance: LORAZEPAM

REACTIONS (1)
  - Nasopharyngitis [Not Recovered/Not Resolved]
